FAERS Safety Report 7017318-9 (Version None)
Quarter: 2010Q3

REPORT INFORMATION
  Report Type: 
  Country: None (occurrence: None)
  Receive Date: 20100928
  Receipt Date: 20100915
  Transmission Date: 20110219
  Serious: No
  Sender: FDA-Public Use
  Company Number: US-BIOGENIDEC-2010BI032672

PATIENT
  Sex: Female

DRUGS (5)
  1. AVONEX [Suspect]
     Indication: MULTIPLE SCLEROSIS
     Route: 030
  2. AMPYRA [Concomitant]
     Indication: GAIT DISTURBANCE
     Route: 048
     Dates: start: 20100530
  3. BACLOFEN [Concomitant]
     Route: 048
     Dates: start: 19960101
  4. LEVOTHYROXINE SODIUM [Concomitant]
     Route: 048
     Dates: start: 19960101
  5. VESICARE [Concomitant]
     Route: 048
     Dates: start: 20100501

REACTIONS (2)
  - INSOMNIA [None]
  - SOMNOLENCE [None]
